FAERS Safety Report 21500661 (Version 1)
Quarter: 2022Q4

REPORT INFORMATION
  Report Type: Spontaneous
  Country: US (occurrence: US)
  Receive Date: 20221025
  Receipt Date: 20221025
  Transmission Date: 20230113
  Serious: No
  Sender: FDA-Public Use
  Company Number: US-JNJFOC-20221007967

PATIENT
  Age: 10 Year
  Sex: Male
  Weight: 27.240 kg

DRUGS (1)
  1. CONCERTA [Suspect]
     Active Substance: METHYLPHENIDATE HYDROCHLORIDE
     Indication: Attention deficit hyperactivity disorder
     Route: 065
     Dates: start: 202109

REACTIONS (5)
  - Depressive symptom [Unknown]
  - Irritability [Unknown]
  - Crying [Unknown]
  - Psychomotor hyperactivity [Unknown]
  - Product availability issue [Unknown]
